FAERS Safety Report 6123093-2 (Version None)
Quarter: 2009Q1

REPORT INFORMATION
  Report Type: 
  Country: None (occurrence: None)
  Receive Date: 20090318
  Receipt Date: 20090306
  Transmission Date: 20090719
  Serious: Yes (Death, Hospitalization, Other)
  Sender: FDA-Public Use
  Company Number: AU-PFIZER INC-2009157588

PATIENT

DRUGS (3)
  1. SUTENT [Suspect]
     Indication: METASTATIC RENAL CELL CARCINOMA
     Dosage: 50 MG, 1X/DAY
     Route: 048
     Dates: start: 20081010
  2. ZOMETA [Suspect]
     Indication: HYPERCALCAEMIA
     Route: 042
     Dates: start: 20081010
  3. DIAMICRON [Concomitant]

REACTIONS (4)
  - DISEASE PROGRESSION [None]
  - RENAL CELL CARCINOMA [None]
  - RENAL FAILURE ACUTE [None]
  - VENA CAVA THROMBOSIS [None]
